FAERS Safety Report 18050183 (Version 1)
Quarter: 2020Q3

REPORT INFORMATION
  Report Type: Spontaneous
  Country: ES (occurrence: ES)
  Receive Date: 20200721
  Receipt Date: 20200721
  Transmission Date: 20201103
  Serious: Yes (Life-Threatening, Other)
  Sender: FDA-Public Use
  Company Number: ES-PFIZER INC-2020274775

PATIENT
  Age: 44 Year
  Sex: Male

DRUGS (4)
  1. AZITHROMYCIN ANHYDROUS. [Suspect]
     Active Substance: AZITHROMYCIN ANHYDROUS
     Dosage: 250 MG, DAILY(500 MG / 24 THE FIRST DAY AND THEN LOW DOSE AT 250 MG / 24)
     Dates: start: 20200407, end: 20200414
  2. HYDROXYCHLOROQUINE [Suspect]
     Active Substance: HYDROXYCHLOROQUINE
     Indication: COVID-19 TREATMENT
     Dosage: 400 MG, 1X/DAY
     Dates: start: 20200406, end: 20200414
  3. AZITHROMYCIN ANHYDROUS. [Suspect]
     Active Substance: AZITHROMYCIN ANHYDROUS
     Indication: COVID-19 TREATMENT
     Dosage: 500 MG, DAILY(500 MG / 24 THE FIRST DAY AND THEN LOW DOSE AT 250 MG / 24)
     Dates: start: 20200406, end: 20200406
  4. LOPINAVIR [Suspect]
     Active Substance: LOPINAVIR
     Indication: COVID-19 TREATMENT
     Dosage: 2 DF, 2X/DAY(200/50 EVERY 2 TABLETS EVERY 12 HOURS)
     Dates: start: 20200406, end: 20200409

REACTIONS (3)
  - Off label use [Unknown]
  - Product use in unapproved indication [Unknown]
  - Atrial fibrillation [Unknown]

NARRATIVE: CASE EVENT DATE: 20200406
